FAERS Safety Report 21937987 (Version 2)
Quarter: 2024Q3

REPORT INFORMATION
  Report Type: Spontaneous
  Country: US (occurrence: US)
  Receive Date: 20230201
  Receipt Date: 20240917
  Transmission Date: 20241017
  Serious: Yes (Other)
  Sender: INCYTE
  Company Number: US-INCYTE CORPORATION-2021IN005019

PATIENT

DRUGS (1)
  1. PEMAZYRE [Suspect]
     Active Substance: PEMIGATINIB
     Indication: Cholangiocarcinoma
     Dosage: UNK
     Route: 065

REACTIONS (7)
  - Cholangiocarcinoma [Unknown]
  - Fibroblast growth factor 23 increased [Unknown]
  - Calcinosis [Recovering/Resolving]
  - Vitamin D decreased [Unknown]
  - Blood calcium increased [Unknown]
  - Disease progression [Unknown]
  - Hyperphosphataemia [Recovered/Resolved]
